FAERS Safety Report 8777029 (Version 1)
Quarter: 2012Q4

REPORT INFORMATION
  Report Type: 
  Country: US (occurrence: US)
  Receive Date: 20120911
  Receipt Date: 20120911
  Transmission Date: 20130627
  Serious: Yes (Death, Hospitalization)
  Sender: FDA-Public Use
  Company Number: US-JNJFOC-20120902544

PATIENT
  Age: 70 Year
  Sex: Female

DRUGS (16)
  1. FENTANYL TRANSDERMAL SYSTEM [Suspect]
     Indication: PAIN
     Route: 062
  2. NAPROXEN [Suspect]
     Indication: PAIN
     Route: 065
  3. TRAMADOL [Suspect]
     Indication: PAIN
     Route: 065
  4. CARISOPRODOL [Suspect]
     Indication: PAIN
     Route: 065
  5. ALPRAZOLAM [Suspect]
     Indication: PAIN
     Route: 065
  6. FOSAMAX [Suspect]
     Indication: PAIN
     Route: 065
  7. HYDROMORPHONE [Suspect]
     Indication: PAIN
     Route: 065
  8. HALOPERIDOL [Suspect]
     Indication: PRODUCT USED FOR UNKNOWN INDICATION
     Route: 065
  9. METHADONE [Suspect]
     Indication: PRODUCT USED FOR UNKNOWN INDICATION
     Route: 065
  10. GABAPENTIN [Suspect]
     Indication: PRODUCT USED FOR UNKNOWN INDICATION
     Route: 065
  11. QUETIAPINE [Suspect]
     Indication: PRODUCT USED FOR UNKNOWN INDICATION
     Route: 065
  12. PROPOFOL [Suspect]
     Indication: PAIN
     Route: 065
  13. BUPIVACAINE [Suspect]
     Indication: PAIN
     Route: 065
  14. CYTOXAN [Suspect]
     Indication: PAIN
     Route: 065
  15. VINCRISTINE [Suspect]
     Indication: PAIN
     Route: 065
  16. DACARBAZINE [Suspect]
     Indication: PAIN
     Route: 065

REACTIONS (4)
  - Phaeochromocytoma [Fatal]
  - Drug ineffective [Unknown]
  - Oxygen consumption increased [Unknown]
  - Somnolence [Unknown]
